FAERS Safety Report 9379074 (Version 1)
Quarter: 2013Q2

REPORT INFORMATION
  Report Type: Spontaneous
  Country: US (occurrence: None)
  Receive Date: 20130626
  Receipt Date: 20130626
  Transmission Date: 20140414
  Serious: Yes (Life-Threatening, Hospitalization)
  Sender: FDA-Public Use
  Company Number: 2013/130

PATIENT
  Age: 73 Year
  Sex: Female

DRUGS (1)
  1. MODAFINIL [Suspect]
     Indication: FATIGUE

REACTIONS (4)
  - Stress cardiomyopathy [None]
  - Hypotension [None]
  - Left ventricle outflow tract obstruction [None]
  - Mitral valve incompetence [None]
